FAERS Safety Report 4734042-3 (Version None)
Quarter: 2005Q3

REPORT INFORMATION
  Report Type: 
  Country: None (occurrence: None)
  Receive Date: 20050801
  Receipt Date: 20040830
  Transmission Date: 20060218
  Serious: Yes (Other)
  Sender: FDA-Public Use
  Company Number: 208767

PATIENT
  Sex: Female

DRUGS (2)
  1. HERCEPTIN [Suspect]
     Indication: BREAST CANCER METASTATIC
     Dosage: 130 MG, 1/WEEK, INTRAVENOUS
     Route: 042
  2. TAXOTERE [Concomitant]

REACTIONS (1)
  - LUNG INFILTRATION [None]
